FAERS Safety Report 18272381 (Version 1)
Quarter: 2020Q3

REPORT INFORMATION
  Report Type: Spontaneous
  Country: FR (occurrence: FR)
  Receive Date: 20200916
  Receipt Date: 20200916
  Transmission Date: 20201103
  Serious: Yes (Death, Life-Threatening, Hospitalization)
  Sender: FDA-Public Use
  Company Number: FR-MYLANLABS-2020M1078602

PATIENT
  Age: 44 Year
  Sex: Male

DRUGS (9)
  1. ACETYLSALICYLIC ACID [Suspect]
     Active Substance: ASPIRIN
     Indication: PRODUCT USED FOR UNKNOWN INDICATION
     Dosage: UNK
     Route: 065
  2. LIDOCAINE. [Suspect]
     Active Substance: LIDOCAINE
     Indication: INDUCTION OF ANAESTHESIA
     Route: 065
     Dates: start: 2011
  3. SUXAMETHONIUM [Suspect]
     Active Substance: SUCCINYLCHOLINE
     Indication: INDUCTION OF ANAESTHESIA
     Route: 065
     Dates: start: 2011
  4. EPINEPHRINE. [Suspect]
     Active Substance: EPINEPHRINE
     Indication: ANAPHYLACTIC SHOCK
     Dosage: 300 MICROGRAM
     Route: 040
  5. REMIFENTANIL [Suspect]
     Active Substance: REMIFENTANIL
     Dosage: GIVEN AGAIN AFTER EIGHT YEARS
     Route: 065
  6. ETOMIDATE. [Concomitant]
     Active Substance: ETOMIDATE
     Indication: INDUCTION OF ANAESTHESIA
     Route: 065
     Dates: start: 2011
  7. ETOMIDATE. [Concomitant]
     Active Substance: ETOMIDATE
     Dosage: GIVEN AGAIN AFTER EIGHT YEARS
     Route: 065
  8. ATRACURIUM [Suspect]
     Active Substance: ATRACURIUM
     Indication: INDUCTION OF ANAESTHESIA
     Dosage: UNK
     Route: 065
  9. REMIFENTANIL [Suspect]
     Active Substance: REMIFENTANIL
     Indication: INDUCTION OF ANAESTHESIA
     Route: 065
     Dates: start: 2011

REACTIONS (6)
  - Hypersensitivity [Recovering/Resolving]
  - Rhabdomyolysis [Fatal]
  - Organ failure [Fatal]
  - Drug ineffective [Unknown]
  - Anaphylactic shock [Fatal]
  - Cardiac arrest [Unknown]

NARRATIVE: CASE EVENT DATE: 2011
